FAERS Safety Report 7452745-7 (Version None)
Quarter: 2011Q2

REPORT INFORMATION
  Report Type: 
  Country: None (occurrence: None)
  Receive Date: 20110502
  Receipt Date: 20101111
  Transmission Date: 20111010
  Serious: No
  Sender: FDA-Public Use
  Company Number: US-ASTRAZENECA-2010SE54033

PATIENT
  Age: 71 Year
  Sex: Female

DRUGS (8)
  1. ZETIA [Concomitant]
  2. LOPRESSOR [Concomitant]
  3. XANAX [Concomitant]
  4. SYNTHROID [Concomitant]
  5. COMPAZINE [Concomitant]
  6. NEXIUM [Suspect]
     Indication: GASTROOESOPHAGEAL REFLUX DISEASE
     Route: 048
     Dates: start: 20101010
  7. LANOXIN [Concomitant]
  8. COUMADIN [Concomitant]

REACTIONS (2)
  - ORAL DISCOMFORT [None]
  - DYSGEUSIA [None]
